FAERS Safety Report 6556794-2 (Version None)
Quarter: 2010Q1

REPORT INFORMATION
  Report Type: 
  Country: None (occurrence: None)
  Receive Date: 20100128
  Receipt Date: 20100114
  Transmission Date: 20100710
  Serious: Yes (Other)
  Sender: FDA-Public Use
  Company Number: PHEH2009US00444

PATIENT
  Sex: Female
  Weight: 78.458 kg

DRUGS (18)
  1. COMBIPATCH [Suspect]
     Dosage: UNK
  2. PREMPRO [Suspect]
     Indication: MENOPAUSAL SYMPTOMS
     Dosage: UNK
  3. ACTIVELLA [Suspect]
  4. CLIMARA [Suspect]
  5. PREVACID [Concomitant]
     Indication: DYSPEPSIA
     Dosage: 15 MG
  6. PLAVIX [Concomitant]
     Dosage: 75 MG
  7. WELLBUTRIN [Concomitant]
     Dosage: UNK
  8. MULTI-VITAMINS [Concomitant]
  9. CELEBREX [Concomitant]
     Dosage: UNK
  10. GLUCOSAMINE /CHONDROITIN /MSM [Concomitant]
     Dosage: UNK
  11. TOPICORT [Concomitant]
     Indication: ERYTHEMA
  12. TOPICORT [Concomitant]
     Indication: FOLLICULITIS
  13. CARDIZEM [Concomitant]
     Indication: PALPITATIONS
     Dosage: UNK
  14. CARTIA XT [Concomitant]
     Dosage: 240 / DAILY
  15. ASPIRIN [Concomitant]
     Dosage: 81 / DAILY
  16. CALCIUM [Concomitant]
     Dosage: UNK
  17. VITAMIN D [Concomitant]
     Dosage: UNK
  18. FOSAMAX [Concomitant]
     Dosage: UNK

REACTIONS (38)
  - ABDOMINAL PAIN [None]
  - ARTERIOSCLEROSIS [None]
  - ASTHENIA [None]
  - ATRIAL FIBRILLATION [None]
  - BACK PAIN [None]
  - BREAST CANCER [None]
  - BREAST LUMP REMOVAL [None]
  - BREAST MASS [None]
  - BRONCHITIS [None]
  - CATARACT [None]
  - CONSTIPATION [None]
  - CORONARY ARTERY DISEASE [None]
  - DERMAL CYST [None]
  - DIARRHOEA [None]
  - DYSPEPSIA [None]
  - ERYTHEMA [None]
  - FATIGUE [None]
  - FIBROADENOMA OF BREAST [None]
  - FIBROCYSTIC BREAST DISEASE [None]
  - FOLLICULITIS [None]
  - GASTRIC DISORDER [None]
  - GASTRIC POLYPS [None]
  - GASTROENTERITIS [None]
  - GASTROOESOPHAGEAL REFLUX DISEASE [None]
  - GROIN PAIN [None]
  - HYPERCHOLESTEROLAEMIA [None]
  - IRRITABLE BOWEL SYNDROME [None]
  - JOINT EFFUSION [None]
  - LYMPHADENOPATHY [None]
  - MASTECTOMY [None]
  - MUSCULOSKELETAL DISCOMFORT [None]
  - NAUSEA [None]
  - OSTEOARTHRITIS [None]
  - PAIN IN EXTREMITY [None]
  - PALPITATIONS [None]
  - PECTUS EXCAVATUM [None]
  - SPINAL OSTEOARTHRITIS [None]
  - TENDONITIS [None]
